FAERS Safety Report 6080860-1 (Version None)
Quarter: 2009Q1

REPORT INFORMATION
  Report Type: 
  Country: None (occurrence: None)
  Receive Date: 20090217
  Receipt Date: 20090205
  Transmission Date: 20090719
  Serious: Yes (Hospitalization)
  Sender: FDA-Public Use
  Company Number: US-SANOFI-SYNTHELABO-A03200805052

PATIENT
  Age: 33 Year
  Sex: Male

DRUGS (1)
  1. AMBIEN [Suspect]
     Indication: DRUG USE FOR UNKNOWN INDICATION
     Dosage: SELF INJECTED WATER DISSOLVED CRUSHED ZOLPIDEM NOS TABLETS INTO HIS RIGHT FOREARM
     Route: 013

REACTIONS (5)
  - HYPOAESTHESIA [None]
  - INTENTIONAL DRUG MISUSE [None]
  - OFF LABEL USE [None]
  - PAIN IN EXTREMITY [None]
  - PERIPHERAL ISCHAEMIA [None]
